FAERS Safety Report 9043341 (Version 1)
Quarter: 2013Q1

REPORT INFORMATION
  Report Type: Report from Study
  Country: US (occurrence: US)
  Receive Date: 20130129
  Receipt Date: 20130129
  Transmission Date: 20140127
  Serious: No
  Sender: FDA-Public Use
  Company Number: US-ABBOTT-12P-163-0914502-00

PATIENT
  Age: 22 Year
  Sex: Male

DRUGS (2)
  1. HUMIRA 40 MG/0.8 ML PEN [Suspect]
     Indication: CROHN^S DISEASE
     Dosage: 160 MG LOADING DOSE
     Dates: start: 20120228, end: 20120228
  2. HUMIRA 40 MG/0.8 ML PEN [Suspect]

REACTIONS (2)
  - Blood urine present [Not Recovered/Not Resolved]
  - Blood urine present [Not Recovered/Not Resolved]
